FAERS Safety Report 13721064 (Version 1)
Quarter: 2017Q3

REPORT INFORMATION
  Report Type: Spontaneous
  Country: US (occurrence: US)
  Receive Date: 20170705
  Receipt Date: 20170705
  Transmission Date: 20171127
  Serious: Yes (Hospitalization, Other)
  Sender: FDA-Public Use
  Company Number: None

PATIENT
  Age: 30 Year
  Sex: Female
  Weight: 74.25 kg

DRUGS (4)
  1. 28 DAY BIRTH CONTROL [Concomitant]
  2. VITAMIN D [Concomitant]
     Active Substance: CHOLECALCIFEROL
  3. CYMBALTA [Suspect]
     Active Substance: DULOXETINE HYDROCHLORIDE
     Indication: FIBROMYALGIA
     Dosage: ?          OTHER STRENGTH:MG;?
     Route: 048
  4. LYRICA [Concomitant]
     Active Substance: PREGABALIN

REACTIONS (10)
  - Nightmare [None]
  - Palpitations [None]
  - Tremor [None]
  - Disorientation [None]
  - Fall [None]
  - Skull fracture [None]
  - Depression [None]
  - Withdrawal syndrome [None]
  - Dizziness [None]
  - Nausea [None]

NARRATIVE: CASE EVENT DATE: 20160510
